FAERS Safety Report 6109973-2 (Version None)
Quarter: 2009Q1

REPORT INFORMATION
  Report Type: 
  Country: None (occurrence: None)
  Receive Date: 20090310
  Receipt Date: 20081013
  Transmission Date: 20090719
  Serious: No
  Sender: FDA-Public Use
  Company Number: A0752460A

PATIENT
  Sex: Male

DRUGS (1)
  1. NICORETTE [Suspect]
     Indication: DRUG USE FOR UNKNOWN INDICATION
     Route: 002

REACTIONS (1)
  - BLOOD GLUCOSE INCREASED [None]
